FAERS Safety Report 9866830 (Version 2)
Quarter: 2014Q1

REPORT INFORMATION
  Report Type: Report from Study
  Country: CA (occurrence: CA)
  Receive Date: 20140204
  Receipt Date: 20140204
  Transmission Date: 20141002
  Serious: Yes (Life-Threatening, Hospitalization, Other)
  Sender: FDA-Public Use
  Company Number: CA-ROCHE-1279895

PATIENT
  Age: 53 Year
  Sex: Female

DRUGS (8)
  1. ACTEMRA [Suspect]
     Indication: RHEUMATOID ARTHRITIS
     Route: 042
     Dates: start: 20120427
  2. ACTEMRA [Suspect]
     Route: 042
     Dates: start: 20121025, end: 20130512
  3. VITAMIN E [Concomitant]
  4. VIMOVO [Concomitant]
  5. SYNTHROID [Concomitant]
  6. ADVIL [Concomitant]
  7. URSODIOL [Concomitant]
  8. VITAMIN C [Concomitant]

REACTIONS (10)
  - Pneumonia [Recovered/Resolved with Sequelae]
  - Blood alkaline phosphatase increased [Unknown]
  - Neutrophil count increased [Unknown]
  - Blood potassium abnormal [Unknown]
  - Blood urea increased [Recovered/Resolved]
  - Blood phosphorus increased [Recovered/Resolved]
  - Red cell distribution width increased [Unknown]
  - Red blood cell count decreased [Recovered/Resolved]
  - Haematocrit increased [Unknown]
  - Platelet count decreased [Recovered/Resolved]
